FAERS Safety Report 8119299-3 (Version None)
Quarter: 2012Q1

REPORT INFORMATION
  Report Type: 
  Country: None (occurrence: None)
  Receive Date: 20120207
  Receipt Date: 20120201
  Transmission Date: 20120608
  Serious: Yes (Hospitalization)
  Sender: FDA-Public Use
  Company Number: IL-EISAI INC-E7389-01959-CLI-IL

PATIENT
  Sex: Female
  Weight: 70 kg

DRUGS (6)
  1. AREDIA [Concomitant]
     Route: 042
     Dates: start: 20120110
  2. LYRICA [Concomitant]
     Indication: PAIN
     Route: 048
     Dates: start: 20111201
  3. TROGIN [Concomitant]
     Indication: PAIN
     Route: 048
     Dates: start: 20111201
  4. ZANTAC [Concomitant]
     Indication: NAUSEA
     Route: 048
     Dates: start: 20120105
  5. EPIRUBICIN HYDROCHLORIDE [Suspect]
     Indication: LEIOMYOSARCOMA
     Route: 041
     Dates: start: 20111222
  6. DIPYRONE INJ [Concomitant]
     Route: 048
     Dates: start: 20120105

REACTIONS (4)
  - STAPHYLOCOCCUS TEST POSITIVE [None]
  - NEUTROPENIA [None]
  - PYREXIA [None]
  - ANAEMIA [None]
